FAERS Safety Report 10767120 (Version 5)
Quarter: 2015Q2

REPORT INFORMATION
  Report Type: Report from Study
  Country: US (occurrence: US)
  Receive Date: 20150205
  Receipt Date: 20150422
  Transmission Date: 20150821
  Serious: Yes (Hospitalization, Other)
  Sender: FDA-Public Use
  Company Number: US-ASTELLAS-2015US003526

PATIENT
  Age: 61 Year
  Sex: Male
  Weight: 103 kg

DRUGS (33)
  1. BLINDED FIDAXOMICIN [Suspect]
     Active Substance: FIDAXOMICIN
     Indication: PROPHYLAXIS
     Dosage: 1 TABLET, QD
     Route: 048
     Dates: start: 20141230, end: 20150108
  2. DIPHENHYDRAMINE [Concomitant]
     Active Substance: DIPHENHYDRAMINE
     Indication: NAUSEA
     Dosage: 25-MG-QD
     Route: 048
     Dates: start: 20141216
  3. CLINDAMYCIN [Concomitant]
     Active Substance: CLINDAMYCIN\CLINDAMYCIN PHOSPHATE
     Indication: ANTIBIOTIC PROPHYLAXIS
     Dosage: 600-MG-QD
     Route: 048
     Dates: start: 20141217, end: 20150103
  4. CLINDAMYCIN [Concomitant]
     Active Substance: CLINDAMYCIN\CLINDAMYCIN PHOSPHATE
     Indication: RASH
     Dosage: 1-APPLICATION-BID
     Route: 061
     Dates: start: 20141216
  5. TACROLIMUS. [Suspect]
     Active Substance: TACROLIMUS
     Indication: CHEMOTHERAPY
     Dosage: 1-MG-Q12H
     Route: 042
     Dates: start: 20150106
  6. ACYCLOVIR                          /00587301/ [Concomitant]
     Active Substance: ACYCLOVIR
     Indication: ANTIVIRAL PROPHYLAXIS
     Route: 048
     Dates: start: 20141216
  7. TEMAZEPAM. [Concomitant]
     Active Substance: TEMAZEPAM
     Indication: ANXIETY
     Route: 048
     Dates: start: 20141216
  8. ACETAMINOPHEN. [Concomitant]
     Active Substance: ACETAMINOPHEN
     Indication: PAIN
     Dosage: 500-MG-BID
     Route: 048
     Dates: start: 20141216
  9. MIDAZOLAM [Concomitant]
     Active Substance: MIDAZOLAM\MIDAZOLAM HYDROCHLORIDE
     Indication: SEDATIVE THERAPY
     Dosage: 4-MG-ONCE
     Route: 042
     Dates: start: 20150102, end: 20150102
  10. PREDNISONE. [Concomitant]
     Active Substance: PREDNISONE
     Indication: SYSTEMIC LUPUS ERYTHEMATOSUS
     Dosage: 10-MG-QD
     Route: 048
     Dates: start: 20141216
  11. FUROSEMIDE. [Concomitant]
     Active Substance: FUROSEMIDE
     Indication: OEDEMA PERIPHERAL
     Dosage: 20-MG-BID
     Route: 048
     Dates: start: 20141216
  12. METOPROLOL SUCCINATE. [Concomitant]
     Active Substance: METOPROLOL SUCCINATE
     Indication: CORONARY ARTERY DISEASE
     Dosage: 50-MG-QD
     Route: 048
     Dates: start: 20141216
  13. FLUORIDE                           /00168201/ [Concomitant]
     Active Substance: SODIUM FLUORIDE
     Indication: DENTAL CARE
     Dosage: 1-APPLICATION-QD
     Route: 050
     Dates: start: 20141217
  14. ENOXAPARIN [Concomitant]
     Active Substance: ENOXAPARIN
     Indication: CORONARY ARTERY DISEASE
     Dosage: 80-MG-Q12H
     Route: 058
     Dates: start: 20141218
  15. ONDANSETRON [Concomitant]
     Active Substance: ONDANSETRON
     Indication: NAUSEA
     Dosage: 24-MG-QD
     Route: 048
     Dates: start: 20150103
  16. DEXAMETHASONE. [Concomitant]
     Active Substance: DEXAMETHASONE
     Indication: PREMEDICATION
     Dosage: 10-MG-QD
     Route: 048
     Dates: start: 20150103, end: 20150105
  17. LORAZEPAM. [Concomitant]
     Active Substance: LORAZEPAM
     Indication: ANXIETY
     Dosage: 0.5-MG-PRN
     Route: 048
     Dates: start: 20141215
  18. VANCOMYCIN [Concomitant]
     Active Substance: VANCOMYCIN
     Indication: DEVICE RELATED INFECTION
     Dosage: 1-G-QD
     Route: 042
     Dates: start: 20150114, end: 20150115
  19. ATORVASTATIN [Concomitant]
     Active Substance: ATORVASTATIN
     Indication: CORONARY ARTERY DISEASE
     Dosage: 20-MG-QD
     Route: 048
     Dates: start: 20141231, end: 20150102
  20. TREOSULFAN [Concomitant]
     Active Substance: TREOSULFAN
     Indication: CHEMOTHERAPY
     Dosage: 28-G-QD
     Route: 042
     Dates: start: 20150103, end: 20150105
  21. CLONAZEPAM. [Concomitant]
     Active Substance: CLONAZEPAM
     Indication: ANXIETY
     Dosage: 0.5-MG-BID
     Route: 060
     Dates: start: 20141216
  22. MICAFUNGIN [Suspect]
     Active Substance: MICAFUNGIN
     Indication: ANTIFUNGAL PROPHYLAXIS
     Dosage: 100-MG-QD
     Route: 042
     Dates: start: 20150103
  23. FLUDARABINE [Concomitant]
     Active Substance: FLUDARABINE PHOSPHATE
     Indication: CHEMOTHERAPY
     Dosage: 60-MG-QD
     Route: 042
     Dates: start: 20150103, end: 20150107
  24. PAROXETINE [Concomitant]
     Active Substance: PAROXETINE\PAROXETINE HYDROCHLORIDE
     Indication: ANXIETY
     Dosage: 40-MG-QD
     Route: 048
     Dates: start: 20141216
  25. ASCORBIC ACID. [Concomitant]
     Active Substance: ASCORBIC ACID
     Indication: HYPOVITAMINOSIS
     Dosage: 500-MG-BID
     Route: 048
     Dates: start: 20141216, end: 20150103
  26. ENOXAPARIN [Concomitant]
     Active Substance: ENOXAPARIN
     Indication: DEEP VEIN THROMBOSIS
  27. DAPSONE. [Concomitant]
     Active Substance: DAPSONE
     Indication: ANTIBIOTIC PROPHYLAXIS
     Dosage: 50-MG-BID
     Route: 048
     Dates: start: 20141219
  28. URSODIOL. [Concomitant]
     Active Substance: URSODIOL
     Indication: PROPHYLAXIS
     Dosage: 300-MG-BID
     Route: 048
     Dates: start: 20141209
  29. VORICONAZOLE. [Concomitant]
     Active Substance: VORICONAZOLE
     Indication: ANTIFUNGAL PROPHYLAXIS
     Dosage: 200-MG-Q12H
     Route: 048
     Dates: start: 20141216
  30. PANTOPRAZOLE [Concomitant]
     Active Substance: PANTOPRAZOLE SODIUM
     Indication: GASTROOESOPHAGEAL REFLUX DISEASE
     Dosage: 40-MG-QD
     Route: 048
     Dates: start: 20141216
  31. LENALIDOMIDE [Concomitant]
     Active Substance: LENALIDOMIDE
     Indication: ANAEMIA
     Dosage: 25-MG-QD
     Route: 048
     Dates: start: 20141216
  32. FENTANYL. [Concomitant]
     Active Substance: FENTANYL
     Indication: SEDATIVE THERAPY
     Dosage: 150-MCG-ONCE
     Route: 042
     Dates: start: 20150102, end: 20150102
  33. MYCOPHENOLATE MOFETIL. [Concomitant]
     Active Substance: MYCOPHENOLATE MOFETIL
     Indication: PROPHYLAXIS AGAINST GRAFT VERSUS HOST DISEASE
     Dosage: 1000-MG-TID
     Route: 048
     Dates: start: 20150109

REACTIONS (1)
  - Cellulitis [Recovered/Resolved]

NARRATIVE: CASE EVENT DATE: 20150115
